FAERS Safety Report 4314966-1 (Version None)
Quarter: 2004Q1

REPORT INFORMATION
  Report Type: 
  Country: None (occurrence: None)
  Receive Date: 20040309
  Receipt Date: 20040219
  Transmission Date: 20041129
  Serious: Yes (Other)
  Sender: FDA-Public Use
  Company Number: USA040157422

PATIENT
  Age: 38 Year
  Sex: Female
  Weight: 80 kg

DRUGS (1)
  1. SARAFEM [Suspect]
     Indication: PREMENSTRUAL SYNDROME
     Dosage: 20 MG/DAY
     Dates: start: 20010501, end: 20031101

REACTIONS (8)
  - DIARRHOEA [None]
  - METABOLIC DISORDER [None]
  - METABOLIC FUNCTION TEST ABNORMAL [None]
  - MUSCLE TWITCHING [None]
  - NASOPHARYNGITIS [None]
  - PSYCHOMOTOR HYPERACTIVITY [None]
  - TRANSIENT ISCHAEMIC ATTACK [None]
  - TREMOR [None]
